FAERS Safety Report 8445577-4 (Version None)
Quarter: 2012Q2

REPORT INFORMATION
  Report Type: 
  Country: None (occurrence: None)
  Receive Date: 20120618
  Receipt Date: 20120608
  Transmission Date: 20120825
  Serious: Yes (Other)
  Sender: FDA-Public Use
  Company Number: US-ASTRAZENECA-2010SE37367

PATIENT
  Age: 60 Year
  Sex: Male

DRUGS (3)
  1. TOPROL-XL [Suspect]
     Route: 048
  2. CRESTOR [Suspect]
     Route: 048
  3. NEXIUM [Suspect]
     Route: 048

REACTIONS (4)
  - HEAD AND NECK CANCER [None]
  - THROAT CANCER [None]
  - METASTASES TO LYMPH NODES [None]
  - TONGUE NEOPLASM MALIGNANT STAGE UNSPECIFIED [None]
